FAERS Safety Report 8978694 (Version 1)
Quarter: 2012Q4

REPORT INFORMATION
  Report Type: Spontaneous
  Country: US (occurrence: None)
  Receive Date: 20121218
  Receipt Date: 20121218
  Transmission Date: 20130627
  Serious: Yes (Other)
  Sender: FDA-Public Use
  Company Number: None

PATIENT
  Sex: Female
  Weight: 56.7 kg

DRUGS (1)
  1. BUPROPION XL [Suspect]
     Indication: DEPRESSION
     Dates: start: 20121101, end: 20121214

REACTIONS (9)
  - Product substitution issue [None]
  - Fatigue [None]
  - Feeling abnormal [None]
  - Disturbance in attention [None]
  - Impaired driving ability [None]
  - Drug ineffective [None]
  - Depression [None]
  - Headache [None]
  - Crying [None]
